FAERS Safety Report 4965113-4 (Version None)
Quarter: 2006Q1

REPORT INFORMATION
  Report Type: 
  Country: None (occurrence: None)
  Receive Date: 20060207
  Receipt Date: 20060120
  Transmission Date: 20060701
  Serious: Yes (Other)
  Sender: FDA-Public Use
  Company Number: 248623

PATIENT
  Age: 56 Year
  Sex: Female
  Weight: 59 kg

DRUGS (6)
  1. NOVOLOG [Suspect]
     Indication: DIABETES MELLITUS INSULIN-DEPENDENT
     Dosage: BASAL .35-.750/HR, BOLUS 12 40/DAY, SUBCUTAN.-PUMP
     Route: 058
     Dates: start: 20030301
  2. ASPIRIN [Concomitant]
  3. MULTIVITAMINS (ERGOCALCIFEROL, FOLIC ACID, NICOTINAMIDE, PANTHENOL, RI [Concomitant]
  4. CALCIUM GLUCONATE [Concomitant]
  5. VIVELLE-DOT [Concomitant]
  6. MINIMED 512 INSULIN PUMP [Concomitant]

REACTIONS (2)
  - BLOOD GLUCOSE DECREASED [None]
  - DIABETIC KETOACIDOSIS [None]
